FAERS Safety Report 22736778 (Version 4)
Quarter: 2023Q4

REPORT INFORMATION
  Report Type: Spontaneous
  Country: JP (occurrence: JP)
  Receive Date: 20230721
  Receipt Date: 20231206
  Transmission Date: 20240110
  Serious: Yes (Hospitalization)
  Sender: FDA-Public Use
  Company Number: JP-ELI_LILLY_AND_COMPANY-JP202307006940

PATIENT
  Age: 80 Year
  Sex: Female

DRUGS (2)
  1. VERZENIO [Suspect]
     Active Substance: ABEMACICLIB
     Indication: Breast cancer recurrent
     Dosage: 150 MG, BID
     Route: 048
     Dates: start: 20230703, end: 20230710
  2. NOLVADEX [Suspect]
     Active Substance: TAMOXIFEN CITRATE
     Indication: Breast cancer recurrent
     Dosage: 20 MG, DAILY
     Dates: start: 20120703

REACTIONS (1)
  - Salivary hypersecretion [Recovered/Resolved]
